FAERS Safety Report 5563010-7 (Version None)
Quarter: 2007Q4

REPORT INFORMATION
  Report Type: 
  Country: None (occurrence: None)
  Receive Date: 20071217
  Receipt Date: 20071211
  Transmission Date: 20080405
  Serious: Yes (Hospitalization)
  Sender: FDA-Public Use
  Company Number: FR-AVENTIS-200713251FR

PATIENT
  Age: 91 Year
  Sex: Female

DRUGS (14)
  1. LASIX [Suspect]
     Indication: HYPERTENSION
     Route: 048
     Dates: start: 20070530, end: 20070718
  2. LOPRIL                             /00498401/ [Suspect]
     Indication: HYPERTENSION
     Route: 048
     Dates: start: 20070530, end: 20070718
  3. PAROXETINE HCL [Suspect]
     Route: 048
     Dates: start: 20070626, end: 20070718
  4. REMINYL                            /00382001/ [Suspect]
     Indication: DEMENTIA
     Route: 048
     Dates: start: 20070416, end: 20070717
  5. LEVOTHYROX [Concomitant]
     Indication: HYPOTHYROIDISM
     Route: 048
     Dates: end: 20070718
  6. LEVOTHYROX [Concomitant]
     Dosage: DOSE: REDUCED DOSE
     Route: 048
     Dates: start: 20070719
  7. CARDENSIEL [Concomitant]
     Indication: HYPERTENSION
     Route: 048
     Dates: start: 20070530, end: 20070718
  8. CARDENSIEL [Concomitant]
     Route: 048
     Dates: start: 20070719
  9. CORDARONE [Concomitant]
     Indication: ATRIAL FIBRILLATION
     Route: 048
     Dates: start: 20070530, end: 20070718
  10. CORDARONE [Concomitant]
     Route: 048
     Dates: start: 20070719
  11. KARDEGIC                           /00002703/ [Concomitant]
     Route: 048
     Dates: end: 20070718
  12. KARDEGIC                           /00002703/ [Concomitant]
     Dosage: DOSE: REDUCED DOSE
     Route: 048
     Dates: start: 20070719
  13. ATARAX                             /00058402/ [Concomitant]
     Indication: ANXIETY
     Route: 048
  14. ATARAX                             /00058402/ [Concomitant]
     Dosage: DOSE: REDUCED DOSE
     Route: 048

REACTIONS (6)
  - BRONCHITIS [None]
  - DEHYDRATION [None]
  - PLEURAL EFFUSION [None]
  - PLEURAL HAEMORRHAGE [None]
  - RENAL FAILURE ACUTE [None]
  - SUPERINFECTION [None]
